FAERS Safety Report 8390166-3 (Version None)
Quarter: 2012Q2

REPORT INFORMATION
  Report Type: 
  Country: None (occurrence: None)
  Receive Date: 20120529
  Receipt Date: 20120517
  Transmission Date: 20120825
  Serious: Yes (Other)
  Sender: FDA-Public Use
  Company Number: JP-PFIZER INC-2012127093

PATIENT
  Age: 55 Year
  Sex: Female

DRUGS (3)
  1. DEPAS [Concomitant]
     Dosage: UNK
     Route: 048
  2. LIPITOR [Suspect]
     Dosage: 5 MG DAILY
     Route: 048
     Dates: start: 20120410, end: 20120517
  3. PAXIL [Concomitant]
     Dosage: UNK
     Route: 048

REACTIONS (1)
  - APLASTIC ANAEMIA [None]
